FAERS Safety Report 6115258-0 (Version None)
Quarter: 2009Q1

REPORT INFORMATION
  Report Type: 
  Country: None (occurrence: None)
  Receive Date: 20090313
  Receipt Date: 20090306
  Transmission Date: 20090719
  Serious: Yes (Hospitalization, Disabling)
  Sender: FDA-Public Use
  Company Number: US-MERCK-0709USA01704

PATIENT
  Age: 47 Year
  Sex: Male
  Weight: 105 kg

DRUGS (11)
  1. FOSAMAX [Suspect]
     Indication: OSTEOPENIA
     Route: 048
     Dates: start: 20000915, end: 20020901
  2. FOSAMAX [Suspect]
     Route: 048
     Dates: start: 20020901, end: 20061026
  3. CELEBREX [Concomitant]
     Indication: NECK PAIN
     Route: 048
     Dates: start: 19990910
  4. GEMFIBROZIL [Concomitant]
     Indication: BLOOD CHOLESTEROL
     Route: 065
     Dates: start: 20000311, end: 20001231
  5. ALBUTEROL [Concomitant]
     Indication: DYSPNOEA
     Route: 065
     Dates: start: 20000904
  6. CLINDAMYCIN [Concomitant]
     Route: 065
     Dates: start: 20000904
  7. PREVACID [Concomitant]
     Indication: GASTROOESOPHAGEAL REFLUX DISEASE
     Route: 065
     Dates: start: 20001203
  8. CYCLOBENZAPRINE HYDROCHLORIDE [Concomitant]
     Indication: HYPOTONIA
     Route: 065
     Dates: start: 20001024
  9. ROXICET [Concomitant]
     Indication: PAIN
     Route: 065
     Dates: start: 19971022
  10. HYTRIN [Concomitant]
     Indication: PROSTATOMEGALY
     Route: 065
     Dates: start: 19970922
  11. [THERAPY UNSPECIFIED] [Concomitant]
     Route: 065

REACTIONS (22)
  - ANAL FISSURE [None]
  - ANXIETY [None]
  - BONE DENSITY DECREASED [None]
  - BRONCHITIS [None]
  - CELLULITIS [None]
  - CENTRAL LINE INFECTION [None]
  - CONFUSIONAL STATE [None]
  - DENTAL CARIES [None]
  - DEPRESSION [None]
  - EMOTIONAL DISTRESS [None]
  - FISTULA [None]
  - HAEMORRHOIDS [None]
  - HYPERKALAEMIA [None]
  - JAW DISORDER [None]
  - JAW FRACTURE [None]
  - OSTEOMYELITIS [None]
  - OSTEONECROSIS [None]
  - PERIODONTITIS [None]
  - RECTAL FISSURE [None]
  - SLEEP DISORDER [None]
  - TOOTH ABSCESS [None]
  - WOUND INFECTION STAPHYLOCOCCAL [None]
